FAERS Safety Report 24768771 (Version 1)
Quarter: 2024Q4

REPORT INFORMATION
  Report Type: Report from Study
  Country: CZ (occurrence: CZ)
  Receive Date: 20241224
  Receipt Date: 20241224
  Transmission Date: 20250114
  Serious: Yes (Life-Threatening)
  Sender: CELLTRION
  Company Number: CZ-CELLTRION INC.-2024CZ032635

PATIENT

DRUGS (43)
  1. INFLIXIMAB-DYYB [Suspect]
     Active Substance: INFLIXIMAB-DYYB
     Indication: Rheumatoid arthritis
     Dosage: 120 MG, SINGLE / FIRST ADMINISTRATION
     Route: 058
     Dates: start: 20230421, end: 20230421
  2. INFLIXIMAB-DYYB [Suspect]
     Active Substance: INFLIXIMAB-DYYB
     Dosage: 120 MG, SINGLE
     Route: 058
     Dates: start: 20230428, end: 20230428
  3. INFLIXIMAB-DYYB [Suspect]
     Active Substance: INFLIXIMAB-DYYB
     Dosage: 120 MG, SINGLE
     Route: 058
     Dates: start: 20230505, end: 20230505
  4. INFLIXIMAB-DYYB [Suspect]
     Active Substance: INFLIXIMAB-DYYB
     Dosage: 120 MG, SINGLE
     Route: 058
     Dates: start: 20230512, end: 20230512
  5. INFLIXIMAB-DYYB [Suspect]
     Active Substance: INFLIXIMAB-DYYB
     Dosage: 120 MG, SINGLE
     Route: 058
     Dates: start: 20230519, end: 20230519
  6. INFLIXIMAB-DYYB [Suspect]
     Active Substance: INFLIXIMAB-DYYB
     Dosage: 120 MG, SINGLE
     Route: 058
     Dates: start: 20230602, end: 20230602
  7. INFLIXIMAB-DYYB [Suspect]
     Active Substance: INFLIXIMAB-DYYB
     Dosage: 120 MG, SINGLE
     Route: 058
     Dates: start: 20230616, end: 20230616
  8. INFLIXIMAB-DYYB [Suspect]
     Active Substance: INFLIXIMAB-DYYB
     Dosage: 120 MG, SINGLE
     Route: 058
     Dates: start: 20230630, end: 20230630
  9. INFLIXIMAB-DYYB [Suspect]
     Active Substance: INFLIXIMAB-DYYB
     Dosage: 120 MG, SINGLE
     Route: 058
     Dates: start: 20230714, end: 20230714
  10. INFLIXIMAB-DYYB [Suspect]
     Active Substance: INFLIXIMAB-DYYB
     Dosage: 120 MG, SINGLE
     Route: 058
     Dates: start: 20230728, end: 20230728
  11. INFLIXIMAB-DYYB [Suspect]
     Active Substance: INFLIXIMAB-DYYB
     Dosage: 120 MG, SINGLE
     Route: 058
     Dates: start: 20230811, end: 20230811
  12. INFLIXIMAB-DYYB [Suspect]
     Active Substance: INFLIXIMAB-DYYB
     Dosage: 120 MG, SINGLE
     Route: 058
     Dates: start: 20230825, end: 20230825
  13. INFLIXIMAB-DYYB [Suspect]
     Active Substance: INFLIXIMAB-DYYB
     Dosage: 120 MG, SINGLE
     Route: 058
     Dates: start: 20230908, end: 20230908
  14. INFLIXIMAB-DYYB [Suspect]
     Active Substance: INFLIXIMAB-DYYB
     Dosage: 120 MG, SINGLE
     Route: 058
     Dates: start: 20230922, end: 20230922
  15. INFLIXIMAB-DYYB [Suspect]
     Active Substance: INFLIXIMAB-DYYB
     Dosage: 120 MG, SINGLE
     Route: 058
     Dates: start: 20231006, end: 20231006
  16. INFLIXIMAB-DYYB [Suspect]
     Active Substance: INFLIXIMAB-DYYB
     Dosage: 120 MG, SINGLE
     Route: 058
     Dates: start: 20231020, end: 20231020
  17. INFLIXIMAB-DYYB [Suspect]
     Active Substance: INFLIXIMAB-DYYB
     Dosage: 120 MG, SINGLE
     Route: 058
     Dates: start: 20231103, end: 20231103
  18. INFLIXIMAB-DYYB [Suspect]
     Active Substance: INFLIXIMAB-DYYB
     Dosage: 120 MG, SINGLE
     Route: 058
     Dates: start: 20231117, end: 20231117
  19. INFLIXIMAB-DYYB [Suspect]
     Active Substance: INFLIXIMAB-DYYB
     Dosage: 120 MG, SINGLE
     Route: 058
     Dates: start: 20231201, end: 20231201
  20. INFLIXIMAB-DYYB [Suspect]
     Active Substance: INFLIXIMAB-DYYB
     Dosage: 120 MG, SINGLE
     Route: 058
     Dates: start: 20231215, end: 20231215
  21. INFLIXIMAB-DYYB [Suspect]
     Active Substance: INFLIXIMAB-DYYB
     Dosage: 120 MG, SINGLE
     Route: 058
     Dates: start: 20231229, end: 20231229
  22. INFLIXIMAB-DYYB [Suspect]
     Active Substance: INFLIXIMAB-DYYB
     Dosage: 120 MG, SINGLE
     Route: 058
     Dates: start: 20240112, end: 20240112
  23. INFLIXIMAB-DYYB [Suspect]
     Active Substance: INFLIXIMAB-DYYB
     Dosage: 120 MG, SINGLE
     Route: 058
     Dates: start: 20240126, end: 20240126
  24. INFLIXIMAB-DYYB [Suspect]
     Active Substance: INFLIXIMAB-DYYB
     Dosage: 120 MG, SINGLE
     Route: 058
     Dates: start: 20240209, end: 20240209
  25. INFLIXIMAB-DYYB [Suspect]
     Active Substance: INFLIXIMAB-DYYB
     Dosage: 120 MG, SINGLE
     Route: 058
     Dates: start: 20240223, end: 20240223
  26. INFLIXIMAB-DYYB [Suspect]
     Active Substance: INFLIXIMAB-DYYB
     Dosage: 120 MG, SINGLE
     Route: 058
     Dates: start: 20240308, end: 20240308
  27. INFLIXIMAB-DYYB [Suspect]
     Active Substance: INFLIXIMAB-DYYB
     Dosage: 120 MG, SINGLE
     Route: 058
     Dates: start: 20240322, end: 20240322
  28. INFLIXIMAB-DYYB [Suspect]
     Active Substance: INFLIXIMAB-DYYB
     Dosage: 120 MG, SINGLE
     Route: 058
     Dates: start: 20240405, end: 20240405
  29. INFLIXIMAB-DYYB [Suspect]
     Active Substance: INFLIXIMAB-DYYB
     Dosage: 120 MG, SINGLE
     Route: 058
     Dates: start: 20240419, end: 20240419
  30. INFLIXIMAB-DYYB [Suspect]
     Active Substance: INFLIXIMAB-DYYB
     Dosage: 120 MG, SINGLE
     Route: 058
     Dates: start: 20240503, end: 20240503
  31. INFLIXIMAB-DYYB [Suspect]
     Active Substance: INFLIXIMAB-DYYB
     Dosage: 120 MG, SINGLE
     Route: 058
     Dates: start: 20240517, end: 20240517
  32. INFLIXIMAB-DYYB [Suspect]
     Active Substance: INFLIXIMAB-DYYB
     Dosage: 120 MG, SINGLE
     Route: 058
     Dates: start: 20240531, end: 20240531
  33. INFLIXIMAB-DYYB [Suspect]
     Active Substance: INFLIXIMAB-DYYB
     Dosage: 120 MG, SINGLE
     Route: 058
     Dates: start: 20240620, end: 20240620
  34. INFLIXIMAB-DYYB [Suspect]
     Active Substance: INFLIXIMAB-DYYB
     Dosage: 120 MG, SINGLE
     Route: 058
     Dates: start: 20240704, end: 20240704
  35. INFLIXIMAB-DYYB [Suspect]
     Active Substance: INFLIXIMAB-DYYB
     Dosage: 120 MG, SINGLE
     Route: 058
     Dates: start: 20240718, end: 20240718
  36. INFLIXIMAB-DYYB [Suspect]
     Active Substance: INFLIXIMAB-DYYB
     Dosage: 120 MG, SINGLE
     Route: 058
     Dates: start: 20240801, end: 20240801
  37. INFLIXIMAB-DYYB [Suspect]
     Active Substance: INFLIXIMAB-DYYB
     Dosage: 120 MG, SINGLE
     Route: 058
     Dates: start: 20240815, end: 20240815
  38. INFLIXIMAB-DYYB [Suspect]
     Active Substance: INFLIXIMAB-DYYB
     Dosage: 120 MG, SINGLE
     Route: 058
     Dates: start: 20240829, end: 20240829
  39. INFLIXIMAB-DYYB [Suspect]
     Active Substance: INFLIXIMAB-DYYB
     Dosage: 120 MG, SINGLE
     Route: 058
     Dates: start: 20240918, end: 20240918
  40. INFLIXIMAB-DYYB [Suspect]
     Active Substance: INFLIXIMAB-DYYB
     Dosage: 120 MG, SINGLE
     Route: 058
     Dates: start: 20241003, end: 20241003
  41. INFLIXIMAB-DYYB [Suspect]
     Active Substance: INFLIXIMAB-DYYB
     Dosage: LAST DOUSE APLICABLE
     Dates: start: 20241212
  42. INFLIXIMAB-DYYB [Suspect]
     Active Substance: INFLIXIMAB-DYYB
     Dosage: LAST ADMINISTRATION DATE (PRIORTO EVENT ONSET)
     Dates: start: 20241220
  43. METHOTREXATE [Concomitant]
     Active Substance: METHOTREXATE
     Indication: Rheumatoid arthritis
     Dosage: 5 MG, ONCE PER WEEK
     Route: 048
     Dates: start: 20230731

REACTIONS (1)
  - Bladder cancer [Not Recovered/Not Resolved]

NARRATIVE: CASE EVENT DATE: 20241214
